FAERS Safety Report 7672443-4 (Version None)
Quarter: 2011Q3

REPORT INFORMATION
  Report Type: 
  Country: None (occurrence: None)
  Receive Date: 20110809
  Receipt Date: 20110801
  Transmission Date: 20111222
  Serious: Yes (Hospitalization)
  Sender: FDA-Public Use
  Company Number: JP-MERCK-1106USA00061

PATIENT
  Age: 84 Year
  Sex: Male
  Weight: 49 kg

DRUGS (9)
  1. CARVEDILOL [Concomitant]
     Indication: CARDIAC FAILURE
     Route: 065
     Dates: start: 20110121
  2. SIGMART [Concomitant]
     Indication: CARDIAC FAILURE
     Route: 065
     Dates: start: 20110121
  3. WARFARIN [Concomitant]
     Route: 065
     Dates: start: 20110406
  4. PEPCID RPD [Suspect]
     Indication: GASTRITIS
     Route: 048
     Dates: start: 20110506, end: 20110527
  5. ASPIRIN [Concomitant]
     Indication: CEREBRAL INFARCTION
     Route: 065
     Dates: start: 20110120
  6. SALOBEL [Concomitant]
     Indication: HYPERURICAEMIA
     Route: 065
     Dates: start: 20110216
  7. ASPENON [Concomitant]
     Route: 065
     Dates: start: 20110404
  8. LASIX [Concomitant]
     Indication: CARDIAC FAILURE
     Route: 065
     Dates: start: 20110122
  9. FRANDOL [Concomitant]
     Indication: CARDIAC FAILURE
     Route: 065
     Dates: start: 20110211

REACTIONS (1)
  - ALTERED STATE OF CONSCIOUSNESS [None]
